FAERS Safety Report 6619563-0 (Version None)
Quarter: 2010Q1

REPORT INFORMATION
  Report Type: 
  Country: None (occurrence: None)
  Receive Date: 20100218
  Receipt Date: 20100205
  Transmission Date: 20100710
  Serious: Yes (Hospitalization, Other)
  Sender: FDA-Public Use
  Company Number: AEUSA201000042

PATIENT
  Age: 67 Year
  Sex: Female

DRUGS (1)
  1. PLASBUMIN-25 [Suspect]
     Indication: OFF LABEL USE
     Dosage: 1X;IV
     Route: 042
     Dates: start: 20100125, end: 20100125

REACTIONS (3)
  - ACUTE RESPIRATORY DISTRESS SYNDROME [None]
  - PLEURAL EFFUSION [None]
  - SEPSIS [None]
